FAERS Safety Report 6387316-7 (Version None)
Quarter: 2009Q3

REPORT INFORMATION
  Report Type: 
  Country: None (occurrence: None)
  Receive Date: 20090930
  Receipt Date: 20090914
  Transmission Date: 20100115
  Serious: Yes (Death, Hospitalization)
  Sender: FDA-Public Use
  Company Number: 2009AL002563

PATIENT
  Age: 60 Year
  Sex: Male

DRUGS (30)
  1. DIGOXIN [Suspect]
     Dosage: 0.125MG, DAILY, PO 0.25MG, DAILY, PO
     Route: 048
  2. LIDOCAINE [Concomitant]
  3. DOBUTREX [Concomitant]
  4. PEPCID [Concomitant]
  5. ASPIRIN [Concomitant]
  6. MULTIPLE VITAMIN [Concomitant]
  7. ACCUPRIL [Concomitant]
  8. ISMO [Concomitant]
  9. LASIX [Concomitant]
  10. MICRO-K [Concomitant]
  11. CARDERONE [Concomitant]
  12. SODIUM BICARBONATE IN PLASTIC CONTAINER [Concomitant]
  13. CIPRO [Concomitant]
  14. QUINAPRIL [Concomitant]
  15. IMDUR [Concomitant]
  16. AMIODARONE [Concomitant]
  17. GEMFIBROZIL [Concomitant]
  18. NPH INSULIN [Concomitant]
  19. HYDROCODONE [Concomitant]
  20. .. [Concomitant]
  21. .. [Concomitant]
  22. .. [Concomitant]
  23. .. [Concomitant]
  24. .. [Concomitant]
  25. .. [Concomitant]
  26. .. [Concomitant]
  27. .. [Concomitant]
  28. .. [Concomitant]
  29. .. [Concomitant]
  30. .. [Concomitant]

REACTIONS (57)
  - ACUTE RESPIRATORY FAILURE [None]
  - ANAL FISTULA [None]
  - ANXIETY [None]
  - AORTIC VALVE DISEASE [None]
  - ARTERIOSCLEROSIS CORONARY ARTERY [None]
  - BLOOD GLUCOSE INCREASED [None]
  - BLOOD MAGNESIUM ABNORMAL [None]
  - BLOOD PHOSPHORUS ABNORMAL [None]
  - BLOOD URIC ACID INCREASED [None]
  - BORDERLINE GLAUCOMA [None]
  - BRONCHITIS [None]
  - CALCULUS URETERIC [None]
  - CARDIAC FAILURE [None]
  - CARDIAC FAILURE CONGESTIVE [None]
  - CARDIOMEGALY [None]
  - CARDIOMYOPATHY [None]
  - CATARACT NUCLEAR [None]
  - CHOLECYSTITIS ACUTE [None]
  - CHRONIC OBSTRUCTIVE PULMONARY DISEASE [None]
  - DIABETES MELLITUS [None]
  - DIPLOPIA [None]
  - DYSPNOEA PAROXYSMAL NOCTURNAL [None]
  - ECONOMIC PROBLEM [None]
  - ESSENTIAL HYPERTENSION [None]
  - FATIGUE [None]
  - FLATULENCE [None]
  - HAEMORRHOIDS [None]
  - HYPERCHOLESTEROLAEMIA [None]
  - HYPERKALAEMIA [None]
  - HYPERKINESIA [None]
  - HYPERLIPIDAEMIA [None]
  - HYPERPARATHYROIDISM [None]
  - HYPERTENSIVE NEPHROPATHY [None]
  - ILL-DEFINED DISORDER [None]
  - INJURY [None]
  - LEFT VENTRICULAR DYSFUNCTION [None]
  - LEUKOCYTOSIS [None]
  - MALAISE [None]
  - MITRAL VALVE DISEASE [None]
  - MITRAL VALVE INCOMPETENCE [None]
  - NEPHROGENIC ANAEMIA [None]
  - ORTHOSTATIC HYPOTENSION [None]
  - PALPITATIONS [None]
  - PNEUMONIA [None]
  - PULMONARY OEDEMA [None]
  - RECTAL STENOSIS [None]
  - RENAL DISORDER [None]
  - RENAL FAILURE [None]
  - SEPTIC SHOCK [None]
  - STRABISMUS [None]
  - SURGERY [None]
  - TRICUSPID VALVE DISEASE [None]
  - URETERIC OBSTRUCTION [None]
  - URINARY RETENTION [None]
  - VENTRICULAR EXTRASYSTOLES [None]
  - VENTRICULAR HYPOKINESIA [None]
  - VENTRICULAR TACHYCARDIA [None]
